FAERS Safety Report 15043790 (Version 3)
Quarter: 2018Q3

REPORT INFORMATION
  Report Type: Spontaneous
  Country: RO (occurrence: RO)
  Receive Date: 20180621
  Receipt Date: 20180730
  Transmission Date: 20181010
  Serious: Yes (Life-Threatening, Hospitalization, Other)
  Sender: FDA-Public Use
  Company Number: RO-BAYER-2018-117199

PATIENT
  Age: 80 Year
  Sex: Female

DRUGS (2)
  1. ULTRAVIST [Suspect]
     Active Substance: IOPROMIDE
     Indication: COMPUTERISED TOMOGRAM PELVIS
  2. ULTRAVIST [Suspect]
     Active Substance: IOPROMIDE
     Indication: COMPUTERISED TOMOGRAM ABDOMEN
     Dosage: 100 ML, ONCE
     Route: 042
     Dates: start: 20180613, end: 20180613

REACTIONS (6)
  - Suffocation feeling [Recovered/Resolved]
  - Vomiting [Recovered/Resolved]
  - Tachypnoea [Recovered/Resolved]
  - Tachycardia [Recovered/Resolved]
  - Nausea [Recovered/Resolved]
  - Product quality issue [None]

NARRATIVE: CASE EVENT DATE: 20180613
